FAERS Safety Report 22354859 (Version 1)
Quarter: 2023Q2

REPORT INFORMATION
  Report Type: Spontaneous
  Country: US (occurrence: US)
  Receive Date: 20230523
  Receipt Date: 20230523
  Transmission Date: 20230721
  Serious: No
  Sender: FDA-Public Use
  Company Number: US-002147023-NVSC2023US113478

PATIENT
  Sex: Male

DRUGS (1)
  1. RIVASTIGMINE [Suspect]
     Active Substance: RIVASTIGMINE
     Indication: Product used for unknown indication
     Dosage: 4.6 MG, Q24H (30TTSM)
     Route: 065

REACTIONS (4)
  - Muscular weakness [Unknown]
  - Memory impairment [Unknown]
  - Dizziness [Unknown]
  - Gait disturbance [Unknown]
